FAERS Safety Report 5130075-6 (Version None)
Quarter: 2006Q4

REPORT INFORMATION
  Report Type: 
  Country: None (occurrence: None)
  Receive Date: 20061013
  Receipt Date: 20060927
  Transmission Date: 20070319
  Serious: Yes (Hospitalization, Disabling)
  Sender: FDA-Public Use
  Company Number: JP200608004661

PATIENT
  Age: 62 Year
  Sex: Female

DRUGS (3)
  1. HUMALOG [Suspect]
     Indication: DIABETES MELLITUS NON-INSULIN-DEPENDENT
     Dosage: 6 U, 3/D, SUBCUTANEOUS
     Route: 058
     Dates: end: 20051104
  2. HUMACART NPH (HUMAN INSULIN (RDNA ORIGIN) NPH UNKNOWN FORMULATION) [Suspect]
     Indication: DIABETES MELLITUS NON-INSULIN-DEPENDENT
     Dosage: 4 U, DAILY (1/D), SUBCUTANEOUS
     Route: 058
     Dates: end: 20051104
  3. RISPERDAL/SWE/(RISPERIDONE) [Concomitant]

REACTIONS (6)
  - ANOREXIA [None]
  - DEPRESSED LEVEL OF CONSCIOUSNESS [None]
  - DYSARTHRIA [None]
  - HYPOGLYCAEMIA [None]
  - MUSCULAR WEAKNESS [None]
  - TREATMENT NONCOMPLIANCE [None]
